FAERS Safety Report 5246053-2 (Version None)
Quarter: 2007Q1

REPORT INFORMATION
  Report Type: 
  Country: None (occurrence: None)
  Receive Date: 20061201
  Receipt Date: 20060808
  Transmission Date: 20070707
  Serious: No
  Sender: FDA-Public Use
  Company Number: 2006PV019115

PATIENT
  Age: 59 Year
  Sex: Female
  Weight: 88.905 kg

DRUGS (3)
  1. BYETTA [Suspect]
     Indication: DIABETES MELLITUS NON-INSULIN-DEPENDENT
     Dosage: 5 MCG;BID;SC, 5 MCG;QD;SC
     Route: 058
     Dates: start: 20060528, end: 20060807
  2. BYETTA [Suspect]
     Indication: DIABETES MELLITUS NON-INSULIN-DEPENDENT
     Dosage: 5 MCG;BID;SC, 5 MCG;QD;SC
     Route: 058
     Dates: start: 20060808
  3. ACTOPLUS MET [Concomitant]

REACTIONS (2)
  - CHILLS [None]
  - WEIGHT DECREASED [None]
